FAERS Safety Report 14054289 (Version 1)
Quarter: 2017Q4

REPORT INFORMATION
  Report Type: Spontaneous
  Country: US (occurrence: None)
  Receive Date: 20171005
  Receipt Date: 20171005
  Transmission Date: 20180321
  Serious: Yes (Hospitalization)
  Sender: FDA-Public Use
  Company Number: None

PATIENT
  Age: 77 Year
  Weight: 55.34 kg

DRUGS (1)
  1. DIAZEPAM. [Suspect]
     Active Substance: DIAZEPAM
     Indication: ANXIETY
     Route: 048
     Dates: start: 20040723

REACTIONS (5)
  - Pulmonary fibrosis [None]
  - Fall [None]
  - Lung consolidation [None]
  - Pneumothorax [None]
  - Dyspnoea [None]

NARRATIVE: CASE EVENT DATE: 20170605
